FAERS Safety Report 17939462 (Version 1)
Quarter: 2020Q2

REPORT INFORMATION
  Report Type: Report from Study
  Country: US (occurrence: US)
  Receive Date: 20200625
  Receipt Date: 20200625
  Transmission Date: 20200714
  Serious: Yes (Hospitalization)
  Sender: FDA-Public Use
  Company Number: US-BIOGEN-2020BI00889366

PATIENT
  Age: 61 Year
  Sex: Male

DRUGS (1)
  1. TECFIDERA [Suspect]
     Active Substance: DIMETHYL FUMARATE
     Indication: MULTIPLE SCLEROSIS
     Dosage: MAINTENANCE DOSE
     Route: 048
     Dates: start: 2017

REACTIONS (6)
  - Fall [Recovered/Resolved]
  - Vision blurred [Unknown]
  - Concussion [Unknown]
  - Dizziness [Unknown]
  - Seizure [Unknown]
  - Swelling [Unknown]

NARRATIVE: CASE EVENT DATE: 20200430
